FAERS Safety Report 8151577-4 (Version None)
Quarter: 2012Q1

REPORT INFORMATION
  Report Type: 
  Country: None (occurrence: None)
  Receive Date: 20120220
  Receipt Date: 20120215
  Transmission Date: 20120608
  Serious: Yes (Death)
  Sender: FDA-Public Use
  Company Number: NL-ROCHE-778240

PATIENT
  Sex: Male
  Weight: 85.8 kg

DRUGS (4)
  1. DEXAMETHASONE [Suspect]
     Indication: PRODUCT USED FOR UNKNOWN INDICATION
     Route: 065
  2. PANTOPRAZOLE [Concomitant]
  3. TEMOZOLOMIDE [Suspect]
     Indication: GLIOBLASTOMA
     Dosage: LAST DOSE PRIOR TO SAE: 16 APR 2011
     Route: 048
     Dates: start: 20110131, end: 20110519
  4. AVASTIN [Suspect]
     Indication: GLIOBLASTOMA
     Dosage: DATE OF LAST DOSE PRIOR TO SAE: 27 APR 2011
     Route: 042
     Dates: start: 20110131, end: 20110427

REACTIONS (1)
  - CEREBROVASCULAR ACCIDENT [None]
